FAERS Safety Report 7092096-6 (Version None)
Quarter: 2010Q4

REPORT INFORMATION
  Report Type: 
  Country: None (occurrence: None)
  Receive Date: 20101109
  Receipt Date: 20101101
  Transmission Date: 20110411
  Serious: Yes (Other)
  Sender: FDA-Public Use
  Company Number: US-JNJCH-2010025076

PATIENT
  Age: 48 Year
  Sex: Male
  Weight: 86.2 kg

DRUGS (1)
  1. PURELL ORIGINAL [Suspect]
     Indication: PRODUCT USED FOR UNKNOWN INDICATION
     Dosage: TEXT:UNKNOWN
     Route: 061
     Dates: start: 20101025, end: 20101031

REACTIONS (5)
  - APPLICATION SITE BURN [None]
  - DRY SKIN [None]
  - OCULAR HYPERAEMIA [None]
  - SKIN DISCOLOURATION [None]
  - WRONG TECHNIQUE IN DRUG USAGE PROCESS [None]
